FAERS Safety Report 24026252 (Version 1)
Quarter: 2024Q2

REPORT INFORMATION
  Report Type: Spontaneous
  Country: DK (occurrence: DK)
  Receive Date: 20240628
  Receipt Date: 20240628
  Transmission Date: 20240715
  Serious: Yes (Hospitalization, Other)
  Sender: FDA-Public Use
  Company Number: DK-MLMSERVICE-20240611-PI093713-00052-1

PATIENT
  Age: 80 Year
  Sex: Female

DRUGS (1)
  1. AMOXICILLIN\CLAVULANIC ACID [Suspect]
     Active Substance: AMOXICILLIN\CLAVULANIC ACID
     Indication: Respiratory tract infection
     Dosage: 1 DOSAGE FORM, 3 TIMES A DAY, TWICE, TOTAL OF 20 DAYS TREATED WITH AMOXICILLIN/CLAVULANIC ACID TABLE
     Route: 065

REACTIONS (2)
  - Cholestasis [Unknown]
  - Drug-induced liver injury [Unknown]
